FAERS Safety Report 16388366 (Version 2)
Quarter: 2019Q2

REPORT INFORMATION
  Report Type: Spontaneous
  Country: US (occurrence: US)
  Receive Date: 20190604
  Receipt Date: 20190610
  Transmission Date: 20190711
  Serious: Yes (Other)
  Sender: FDA-Public Use
  Company Number: US-PFIZER INC-2019232123

PATIENT
  Age: 73 Year
  Sex: Female
  Weight: 75.3 kg

DRUGS (4)
  1. PREMARIN [Suspect]
     Active Substance: ESTROGENS, CONJUGATED
     Dosage: UNK UNK, 1X/DAY
     Route: 048
  2. JANUVIA [Concomitant]
     Active Substance: SITAGLIPTIN PHOSPHATE
     Dosage: 50 MG, 2X/DAY
     Route: 048
  3. METFORMIN [Concomitant]
     Active Substance: METFORMIN HYDROCHLORIDE
     Indication: DIABETES MELLITUS
     Dosage: 1000 MG, 2X/DAY (IN THE MORNING AND IN THE NIGHT)
     Route: 048
  4. GLIPIZIDE. [Concomitant]
     Active Substance: GLIPIZIDE
     Indication: BLOOD GLUCOSE ABNORMAL
     Dosage: 10 MG, 2X/DAY
     Route: 048

REACTIONS (9)
  - Neoplasm malignant [Unknown]
  - Vulvovaginal dryness [Unknown]
  - Libido decreased [Unknown]
  - Malaise [Unknown]
  - Asthenia [Unknown]
  - Atrophic vulvovaginitis [Unknown]
  - Hot flush [Unknown]
  - Bone pain [Unknown]
  - Depression [Unknown]
